FAERS Safety Report 21761016 (Version 1)
Quarter: 2022Q4

REPORT INFORMATION
  Report Type: Spontaneous
  Country: CN (occurrence: CN)
  Receive Date: 20221221
  Receipt Date: 20221221
  Transmission Date: 20230113
  Serious: Yes (Hospitalization)
  Sender: FDA-Public Use
  Company Number: CN-SLATE RUN PHARMACEUTICALS-22CN001451

PATIENT

DRUGS (2)
  1. AZITHROMYCIN [Suspect]
     Active Substance: AZITHROMYCIN
     Indication: Respiratory tract infection
     Dosage: 500 MILLIGRAM, QD
     Route: 048
     Dates: start: 20200310, end: 202003
  2. CEFIXIME [Suspect]
     Active Substance: CEFIXIME
     Indication: Respiratory tract infection
     Dosage: 0.2 UNK, Q 12 HR
     Route: 048
     Dates: start: 20200310, end: 202003

REACTIONS (3)
  - Condition aggravated [Recovered/Resolved]
  - Haemoptysis [Recovered/Resolved]
  - Drug ineffective [Recovered/Resolved]

NARRATIVE: CASE EVENT DATE: 20200301
